FAERS Safety Report 7759784-7 (Version None)
Quarter: 2011Q3

REPORT INFORMATION
  Report Type: 
  Country: None (occurrence: None)
  Receive Date: 20110915
  Receipt Date: 20110902
  Transmission Date: 20111222
  Serious: Yes (Other)
  Sender: FDA-Public Use
  Company Number: GER/UKI/10/0016210

PATIENT
  Age: 49 Year
  Sex: Female

DRUGS (7)
  1. LAMOTRIGINE [Suspect]
     Indication: CONVULSION
     Dosage: 50 MG
     Dates: end: 20100801
  2. RAMIPRIL [Concomitant]
  3. TEMAZEPAM [Concomitant]
  4. AMISULPRIDE (AMISULPRIDE) [Suspect]
     Indication: SCHIZOPHRENIA
     Dosage: 200 MG, ORAL
     Route: 048
     Dates: end: 20100801
  5. PAROXETINE HCL [Concomitant]
  6. CLOZARIL [Suspect]
     Indication: DISEASE RECURRENCE
     Dosage: 600 MG, ORAL
     Route: 048
  7. CLOZARIL [Suspect]
     Indication: SCHIZOPHRENIA
     Dosage: 600 MG, ORAL
     Route: 048

REACTIONS (9)
  - HAEMOGLOBIN DECREASED [None]
  - NEUTROPHIL COUNT INCREASED [None]
  - ABSCESS [None]
  - MENTAL IMPAIRMENT [None]
  - WHITE BLOOD CELL COUNT INCREASED [None]
  - BREAST CANCER [None]
  - BREAST ABSCESS [None]
  - METASTASES TO SPINE [None]
  - PLATELET COUNT DECREASED [None]
